FAERS Safety Report 5214720-2 (Version None)
Quarter: 2007Q1

REPORT INFORMATION
  Report Type: 
  Country: None (occurrence: None)
  Receive Date: 20070122
  Receipt Date: 20070112
  Transmission Date: 20070707
  Serious: Yes (Other)
  Sender: FDA-Public Use
  Company Number: JP-ELI_LILLY_AND_COMPANY-JP200701002568

PATIENT
  Age: 55 Year
  Sex: Female

DRUGS (4)
  1. EVISTA [Suspect]
     Indication: OSTEOPOROSIS
     Dosage: 60 MG, DAILY (1/D)
     Route: 048
     Dates: start: 20060421, end: 20070101
  2. RIMATIL [Concomitant]
     Indication: MUSCULOSKELETAL PAIN
  3. PREDNISOLONE [Concomitant]
     Indication: INFLAMMATION
  4. JUZENTAIHOTO [Concomitant]

REACTIONS (1)
  - VISUAL ACUITY REDUCED [None]
